FAERS Safety Report 9530255 (Version 1)
Quarter: 2013Q3

REPORT INFORMATION
  Report Type: Spontaneous
  Country: BR (occurrence: BR)
  Receive Date: 20130917
  Receipt Date: 20130917
  Transmission Date: 20140515
  Serious: Yes (Other)
  Sender: FDA-Public Use
  Company Number: PHHY2013BR102427

PATIENT
  Age: 54 Year
  Sex: Male
  Weight: 100.6 kg

DRUGS (8)
  1. TEGRETOL [Suspect]
     Indication: EPILEPSY
     Dosage: 1.5 DF, DAILY
     Route: 048
  2. HYDROCHLOROTHIAZIDE [Suspect]
     Indication: OEDEMA
     Dosage: 1 DF, QOD
     Route: 048
     Dates: start: 201306
  3. HIDANTAL [Suspect]
     Indication: CONVULSION
     Dosage: 2 DF, DAILY
     Route: 048
  4. NEOSINE [Suspect]
     Indication: SEDATION
     Dosage: 1.5 DF, DAILY
     Route: 048
  5. NEOSINE [Suspect]
     Dosage: 37.5 MG, DAILY
     Route: 048
  6. CHLORTHALIDONE [Suspect]
     Indication: OEDEMA
     Dosage: 1 DF, QOD
     Route: 048
     Dates: start: 201211
  7. SIMVASTATIN [Concomitant]
     Indication: BLOOD CHOLESTEROL
     Dosage: 1 DF, UNK
     Route: 048
     Dates: start: 201211
  8. CLONAZEPAM [Concomitant]
     Indication: SLEEP DISORDER
     Dosage: 1 DF, DAILY
     Route: 048
     Dates: start: 201208

REACTIONS (7)
  - Hepatic steatosis [Not Recovered/Not Resolved]
  - Varicose vein [Not Recovered/Not Resolved]
  - Weight decreased [Not Recovered/Not Resolved]
  - Cardiac disorder [Not Recovered/Not Resolved]
  - Hypotension [Not Recovered/Not Resolved]
  - Oedema peripheral [Not Recovered/Not Resolved]
  - Wrong technique in drug usage process [Unknown]
